FAERS Safety Report 13013140 (Version 1)
Quarter: 2016Q4

REPORT INFORMATION
  Report Type: Spontaneous
  Country: US (occurrence: US)
  Receive Date: 20161209
  Receipt Date: 20161209
  Transmission Date: 20170207
  Serious: Yes (Life-Threatening, Hospitalization, Other)
  Sender: FDA-Public Use
  Company Number: US-WEST-WARD PHARMACEUTICALS CORP.-US-H14001-16-02676

PATIENT
  Age: 67 Year
  Sex: Male

DRUGS (10)
  1. LORAZEPAM. [Concomitant]
     Active Substance: LORAZEPAM
     Indication: PRODUCT USED FOR UNKNOWN INDICATION
     Route: 065
  2. CHLORPROMAZINE. [Interacting]
     Active Substance: CHLORPROMAZINE
     Indication: PSYCHOTIC DISORDER
     Route: 048
  3. TAMSULOSIN [Concomitant]
     Active Substance: TAMSULOSIN
     Indication: PRODUCT USED FOR UNKNOWN INDICATION
     Route: 065
  4. LEVOTHYROXINE. [Concomitant]
     Active Substance: LEVOTHYROXINE
     Indication: PRODUCT USED FOR UNKNOWN INDICATION
     Route: 065
  5. CHLORPROMAZINE. [Suspect]
     Active Substance: CHLORPROMAZINE
     Indication: PSYCHOTIC DISORDER
     Route: 030
  6. CHLORPROMAZINE. [Interacting]
     Active Substance: CHLORPROMAZINE
     Route: 048
  7. BENZTROPINE MESYLATE. [Concomitant]
     Active Substance: BENZTROPINE MESYLATE
     Indication: PRODUCT USED FOR UNKNOWN INDICATION
     Route: 065
  8. PROTONIX [Concomitant]
     Active Substance: PANTOPRAZOLE SODIUM
     Indication: PRODUCT USED FOR UNKNOWN INDICATION
     Route: 065
  9. SPIRONOLACTONE. [Concomitant]
     Active Substance: SPIRONOLACTONE
     Indication: PRODUCT USED FOR UNKNOWN INDICATION
     Route: 065
  10. TRIMETOPRIM SULFAMETOXAZOL [Interacting]
     Active Substance: SULFAMETHOXAZOLE\TRIMETHOPRIM
     Indication: ESCHERICHIA URINARY TRACT INFECTION
     Dosage: HIGH DOSE
     Route: 065

REACTIONS (3)
  - Potentiating drug interaction [Recovered/Resolved]
  - Agranulocytosis [Recovered/Resolved]
  - Septic shock [Recovered/Resolved]
